FAERS Safety Report 17818107 (Version 1)
Quarter: 2020Q2

REPORT INFORMATION
  Report Type: Report from Study
  Country: None (occurrence: LT)
  Receive Date: 20200522
  Receipt Date: 20200522
  Transmission Date: 20200714
  Serious: Yes (Other)
  Sender: FDA-Public Use
  Company Number: LT-STI PHARMA LLC-2084126

PATIENT
  Age: 23 Year
  Sex: Female
  Weight: 58 kg

DRUGS (5)
  1. LINEZOLID. [Suspect]
     Active Substance: LINEZOLID
     Dates: end: 20190921
  2. LEVOFLOXACIN. [Suspect]
     Active Substance: LEVOFLOXACIN
  3. DELAMANID [Suspect]
     Active Substance: DELAMANID
     Dates: start: 20180711, end: 20181230
  4. ETHAMBUTOL HYDROCHLORIDE. [Suspect]
     Active Substance: ETHAMBUTOL HYDROCHLORIDE
     Indication: TUBERCULOSIS
     Route: 048
     Dates: end: 20190921
  5. CYCLOSERINE. [Suspect]
     Active Substance: CYCLOSERINE
     Dates: end: 20190921

REACTIONS (2)
  - Abortion missed [Unknown]
  - Pregnancy [Unknown]

NARRATIVE: CASE EVENT DATE: 20190921
